FAERS Safety Report 14532842 (Version 2)
Quarter: 2018Q1

REPORT INFORMATION
  Report Type: Report from Study
  Country: None (occurrence: KR)
  Receive Date: 20180214
  Receipt Date: 20180217
  Transmission Date: 20180509
  Serious: Yes (Hospitalization)
  Sender: FDA-Public Use
  Company Number: KR-ABBVIE-18S-090-2255338-00

PATIENT
  Sex: Female
  Weight: 49 kg

DRUGS (11)
  1. ACTONEL EC [Concomitant]
     Indication: OSTEOPOROSIS
     Dosage: UNIT DOSE: 1
     Route: 048
     Dates: start: 20180131, end: 20180131
  2. ENTELON [Concomitant]
     Indication: ARTHRITIS
     Dosage: UNIT DOSE: 2
     Route: 048
     Dates: start: 20180125, end: 20180125
  3. ESCITALOPRAM OXALATE. [Concomitant]
     Active Substance: ESCITALOPRAM OXALATE
     Indication: ANXIETY
     Dosage: UNIT DOSE: 1
     Route: 048
     Dates: start: 20180131, end: 20180208
  4. ADCAL [Concomitant]
     Active Substance: CALCIUM CARBONATE
     Indication: OSTEOPOROSIS
     Dosage: UNIT DOSE: 2
     Route: 048
     Dates: start: 20180131, end: 20180208
  5. HYDROCORTISONE. [Concomitant]
     Active Substance: HYDROCORTISONE
     Indication: CUSHING^S SYNDROME
     Dosage: UNIT DOSE: 2
     Route: 048
     Dates: start: 20180131, end: 20180208
  6. VIEKIRAX [Suspect]
     Active Substance: OMBITASVIR\PARITAPREVIR\RITONAVIR
     Indication: HEPATITIS C
     Route: 048
     Dates: start: 20171204
  7. EXVIERA [Suspect]
     Active Substance: DASABUVIR
     Indication: HEPATITIS C
     Route: 048
     Dates: start: 20171204
  8. VARIDASE [Concomitant]
     Indication: ARTHRITIS
     Dosage: UNIT DOSE: 2
     Route: 048
     Dates: start: 20180125, end: 20180125
  9. ZOLPIDEM TARTRATE. [Concomitant]
     Active Substance: ZOLPIDEM TARTRATE
     Indication: INSOMNIA
     Dosage: UNIT DOSE: 1
     Route: 048
     Dates: start: 20180130, end: 20180208
  10. EPERISONE HCL [Concomitant]
     Indication: ARTHRITIS
     Dosage: UNIT DOSE: 1
     Route: 048
     Dates: start: 20180125, end: 20180125
  11. DIAZEPAM. [Concomitant]
     Active Substance: DIAZEPAM
     Indication: ANXIETY
     Dosage: UNIT DOSE: 1
     Route: 048
     Dates: start: 20180131, end: 20180208

REACTIONS (1)
  - Oedema [Recovering/Resolving]

NARRATIVE: CASE EVENT DATE: 20180108
